FAERS Safety Report 10367691 (Version 2)
Quarter: 2014Q3

REPORT INFORMATION
  Report Type: Spontaneous
  Country: BR (occurrence: None)
  Receive Date: 20140805
  Receipt Date: 20140815
  Transmission Date: 20150326
  Serious: Yes (Other)
  Sender: FDA-Public Use
  Company Number: VAL_03257_2014

PATIENT
  Age: 81 Year
  Sex: Female

DRUGS (2)
  1. VISKALDIX [Suspect]
     Active Substance: CLOPAMIDE\PINDOLOL
     Indication: HYPERTENSION
     Dosage: 1 DF, BID, [MORNING AND NOON] ORAL)
     Route: 048
     Dates: start: 1984
  2. SELOZOK [Suspect]
     Active Substance: METOPROLOL SUCCINATE
     Indication: PRODUCT USED FOR UNKNOWN INDICATION

REACTIONS (2)
  - Drug ineffective [None]
  - Blood pressure inadequately controlled [None]

NARRATIVE: CASE EVENT DATE: 20140722
